FAERS Safety Report 8074300-0 (Version None)
Quarter: 2012Q1

REPORT INFORMATION
  Report Type: 
  Country: None (occurrence: None)
  Receive Date: 20120126
  Receipt Date: 20120118
  Transmission Date: 20120608
  Serious: Yes (Other)
  Sender: FDA-Public Use
  Company Number: US-ABBOTT-12P-163-0895409-00

PATIENT
  Sex: Female

DRUGS (3)
  1. UNKNOWN STEROID [Interacting]
     Indication: CROHN'S DISEASE
  2. VICODIN [Suspect]
     Indication: TOOTH EXTRACTION
     Dates: start: 20110601, end: 20110601
  3. PENTASA [Concomitant]
     Indication: CROHN'S DISEASE

REACTIONS (5)
  - ABDOMINAL PAIN UPPER [None]
  - DEHYDRATION [None]
  - VOMITING [None]
  - DRUG INTERACTION [None]
  - NAUSEA [None]
